FAERS Safety Report 23960754 (Version 2)
Quarter: 2025Q2

REPORT INFORMATION
  Report Type: Spontaneous
  Country: JP (occurrence: JP)
  Receive Date: 20240611
  Receipt Date: 20250425
  Transmission Date: 20250716
  Serious: Yes (Hospitalization)
  Sender: ROCHE
  Company Number: JP-CHUGAI-2024019344

PATIENT
  Age: 61 Year
  Sex: Male

DRUGS (4)
  1. ACTEMRA [Suspect]
     Active Substance: TOCILIZUMAB
     Indication: Rheumatoid arthritis
     Dosage: UNK
     Route: 050
  2. METHOTREXATE [Concomitant]
     Active Substance: METHOTREXATE
  3. PREDNISOLONE [Concomitant]
     Active Substance: PREDNISOLONE
  4. SULFASALAZINE [Concomitant]
     Active Substance: SULFASALAZINE

REACTIONS (3)
  - Fistula [Unknown]
  - Cellulitis [Unknown]
  - Subcutaneous abscess [Unknown]
